FAERS Safety Report 6371368-4 (Version None)
Quarter: 2009Q3

REPORT INFORMATION
  Report Type: 
  Country: None (occurrence: None)
  Receive Date: 20090918
  Receipt Date: 20090918
  Transmission Date: 20100115
  Serious: Yes (Hospitalization)
  Sender: FDA-Public Use
  Company Number: None

PATIENT
  Age: 57 Year
  Sex: Male
  Weight: 57.1532 kg

DRUGS (1)
  1. DIVALPROEX SODIUM [Suspect]
     Indication: SCHIZOAFFECTIVE DISORDER
     Dosage: 1000 MG AT BEDTIME PO
     Route: 048
     Dates: start: 19981212, end: 20090906

REACTIONS (7)
  - HYPERAMMONAEMIA [None]
  - HYPERCAPNIA [None]
  - MENTAL STATUS CHANGES [None]
  - RESPIRATORY FAILURE [None]
  - SEDATION [None]
  - SOMNOLENCE [None]
  - TREATMENT NONCOMPLIANCE [None]
